FAERS Safety Report 17147305 (Version 1)
Quarter: 2019Q4

REPORT INFORMATION
  Report Type: Spontaneous
  Country: GB (occurrence: VN)
  Receive Date: 20191212
  Receipt Date: 20191212
  Transmission Date: 20200122
  Serious: Yes (Other)
  Sender: FDA-Public Use
  Company Number: VN-ASTELLAS-2019US049368

PATIENT
  Age: 61 Year

DRUGS (1)
  1. ERLOTINIB [Suspect]
     Active Substance: ERLOTINIB
     Indication: LUNG NEOPLASM MALIGNANT
     Route: 065

REACTIONS (12)
  - Chest pain [Unknown]
  - Dyspnoea [Unknown]
  - Productive cough [Unknown]
  - Dizziness [Unknown]
  - Chest discomfort [Unknown]
  - Mouth ulceration [Unknown]
  - Cerebral disorder [Unknown]
  - Meningeal disorder [Unknown]
  - Headache [Unknown]
  - Nausea [Unknown]
  - Haemoptysis [Unknown]
  - Rash erythematous [Unknown]

NARRATIVE: CASE EVENT DATE: 201907
